FAERS Safety Report 17680872 (Version 1)
Quarter: 2020Q2

REPORT INFORMATION
  Report Type: Spontaneous
  Country: US (occurrence: US)
  Receive Date: 20200417
  Receipt Date: 20200417
  Transmission Date: 20200714
  Serious: Yes (Death)
  Sender: FDA-Public Use
  Company Number: None

PATIENT
  Age: 70 Year
  Sex: Male

DRUGS (1)
  1. FLUOROURACIL (FLUOROURACIL 50MG/ML INJ) [Suspect]
     Active Substance: FLUOROURACIL
     Dates: start: 20200128, end: 20200128

REACTIONS (5)
  - Diarrhoea [None]
  - Incorrect drug administration rate [None]
  - Cough [None]
  - Mouth swelling [None]
  - Sepsis [None]

NARRATIVE: CASE EVENT DATE: 20200204
